FAERS Safety Report 10257242 (Version 1)
Quarter: 2014Q2

REPORT INFORMATION
  Report Type: Spontaneous
  Country: US (occurrence: None)
  Receive Date: 20140620
  Receipt Date: 20140620
  Transmission Date: 20141212
  Serious: Yes (Other)
  Sender: FDA-Public Use
  Company Number: AUR-APL-2014-06489

PATIENT
  Age: 34 Year
  Sex: Female

DRUGS (10)
  1. RISPERIDONE [Suspect]
     Indication: BIPOLAR DISORDER
  2. FLUOXETINE [Suspect]
     Indication: BIPOLAR DISORDER
  3. QUETIAPINE (QUETIAPINE) UNKNOWN, UNKNOWN [Suspect]
     Indication: BIPOLAR DISORDER
  4. HALOPERIDOL (HALOPERIDOL) (HALOPERIDOL) [Suspect]
     Indication: BIPOLAR DISORDER
  5. CHLORPROMAZINE (CHLORPROMAZINE) [Suspect]
     Indication: BIPOLAR DISORDER
  6. TRIFLUOPERAZINE [Suspect]
     Indication: BIPOLAR DISORDER
  7. NORTRIPTYLINE (NORTRIPTYLINE) [Suspect]
     Indication: BIPOLAR DISORDER
  8. DESIPRAMINE (DESIPRAMINE) (DESIPRAMINE) [Concomitant]
  9. CLOMIPRAMINE [Suspect]
     Indication: BIPOLAR DISORDER
  10. BUSPIRONE (BUSPIRONE) [Suspect]
     Indication: BIPOLAR DISORDER

REACTIONS (4)
  - Sedation [None]
  - Drug intolerance [None]
  - Narcolepsy [None]
  - Off label use [None]
